FAERS Safety Report 10209867 (Version 3)
Quarter: 2014Q3

REPORT INFORMATION
  Report Type: Spontaneous
  Country: US (occurrence: US)
  Receive Date: 20140602
  Receipt Date: 20140801
  Transmission Date: 20150326
  Serious: Yes (Life-Threatening, Hospitalization, Other)
  Sender: FDA-Public Use
  Company Number: US-009507513-1405USA013337

PATIENT
  Age: 58 Year
  Sex: Male
  Weight: 90.7 kg

DRUGS (3)
  1. VITAMIN B (UNSPECIFIED) [Concomitant]
     Dosage: UNK
     Dates: start: 2013, end: 2013
  2. REBETOL [Suspect]
     Active Substance: RIBAVIRIN
     Dosage: UNK, QD (ONCE DAILY)
     Route: 048
  3. LEVOTHROID [Concomitant]
     Active Substance: LEVOTHYROXINE SODIUM
     Indication: HYPOTHYROIDISM
     Dosage: 75 MICROGRAM, QD
     Route: 048
     Dates: start: 2013

REACTIONS (5)
  - Nausea [Recovering/Resolving]
  - Stent placement [Unknown]
  - Stent placement [Unknown]
  - Thrombosis in device [Unknown]
  - Acute myocardial infarction [Recovered/Resolved]

NARRATIVE: CASE EVENT DATE: 2014
